FAERS Safety Report 4968803-2 (Version None)
Quarter: 2006Q2

REPORT INFORMATION
  Report Type: 
  Country: None (occurrence: None)
  Receive Date: 20060411
  Receipt Date: 20060206
  Transmission Date: 20061013
  Serious: Yes (Disabling)
  Sender: FDA-Public Use
  Company Number: JP-JPN-A200600483

PATIENT
  Age: 33 Year
  Sex: Female
  Weight: 57 kg

DRUGS (6)
  1. ZIAGEN [Suspect]
     Indication: HIV INFECTION
     Dosage: 300MG TWICE PER DAY
     Route: 048
     Dates: start: 20060119, end: 20060302
  2. RETROVIR [Suspect]
     Dosage: 200MG TWICE PER DAY
     Route: 048
     Dates: start: 20001101
  3. STOCRIN [Suspect]
     Dosage: 600MG PER DAY
     Route: 048
     Dates: start: 20060119
  4. VIDEX [Concomitant]
     Indication: HIV INFECTION
     Route: 048
  5. EPIVIR [Concomitant]
     Route: 048
     Dates: start: 20060119
  6. VIRACEPT [Concomitant]
     Route: 048

REACTIONS (6)
  - DECREASED APPETITE [None]
  - HEADACHE [None]
  - LIVER DISORDER [None]
  - NAUSEA [None]
  - RASH [None]
  - RASH GENERALISED [None]
